FAERS Safety Report 9585994 (Version 1)
Quarter: 2013Q4

REPORT INFORMATION
  Report Type: Spontaneous
  Country: US (occurrence: US)
  Receive Date: 20131003
  Receipt Date: 20131003
  Transmission Date: 20140711
  Serious: Yes (Other)
  Sender: FDA-Public Use
  Company Number: US-PFIZER INC-2013277970

PATIENT
  Age: 51 Year
  Sex: Female
  Weight: 65.76 kg

DRUGS (1)
  1. ADVIL [Suspect]
     Indication: TOOTHACHE
     Dosage: UNK (12 TABLETS OF 200MG EACH IN A DAY)
     Route: 048
     Dates: start: 201309

REACTIONS (2)
  - Overdose [Unknown]
  - Haematochezia [Not Recovered/Not Resolved]
